FAERS Safety Report 7931151-2 (Version None)
Quarter: 2011Q4

REPORT INFORMATION
  Report Type: 
  Country: None (occurrence: None)
  Receive Date: 20111121
  Receipt Date: 20111110
  Transmission Date: 20120403
  Serious: Yes (Other)
  Sender: FDA-Public Use
  Company Number: AU-MERCK-1111USA01533

PATIENT
  Age: 56 Year
  Sex: Male

DRUGS (2)
  1. ISENTRESS [Suspect]
     Indication: HIV INFECTION
     Route: 048
  2. ZIDOVUDINE [Suspect]
     Indication: HIV INFECTION
     Route: 065
     Dates: start: 20070315

REACTIONS (17)
  - RHEUMATOID ARTHRITIS [None]
  - HYPERTHYROIDISM [None]
  - ARTHRITIS [None]
  - SYNOVITIS [None]
  - SQUAMOUS CELL CARCINOMA [None]
  - LETHARGY [None]
  - ARTHRALGIA [None]
  - BLOOD THYROID STIMULATING HORMONE INCREASED [None]
  - CRYOGLOBULINS PRESENT [None]
  - IMMUNE RECONSTITUTION SYNDROME [None]
  - NEOPLASM MALIGNANT [None]
  - DYSPHONIA [None]
  - HYPOTHYROIDISM [None]
  - WEIGHT INCREASED [None]
  - WOUND [None]
  - RHEUMATOID FACTOR INCREASED [None]
  - GENERALISED OEDEMA [None]
